FAERS Safety Report 17199695 (Version 1)
Quarter: 2019Q4

REPORT INFORMATION
  Report Type: Spontaneous
  Country: PL (occurrence: PL)
  Receive Date: 20191226
  Receipt Date: 20191226
  Transmission Date: 20200122
  Serious: Yes (Hospitalization)
  Sender: FDA-Public Use
  Company Number: PL-BIOGEN-2019BI00819253

PATIENT
  Age: 53 Year
  Sex: Female

DRUGS (1)
  1. SPINRAZA [Suspect]
     Active Substance: NUSINERSEN
     Indication: SPINAL MUSCULAR ATROPHY
     Route: 065
     Dates: start: 20191212

REACTIONS (4)
  - Spinal pain [Unknown]
  - Arthralgia [Unknown]
  - Neuralgia [Unknown]
  - Pyrexia [Unknown]
